FAERS Safety Report 9371783 (Version 1)
Quarter: 2013Q2

REPORT INFORMATION
  Report Type: Spontaneous
  Country: US (occurrence: US)
  Receive Date: 20130627
  Receipt Date: 20130627
  Transmission Date: 20140414
  Serious: No
  Sender: FDA-Public Use
  Company Number: US-BAYER-2013-078653

PATIENT
  Sex: Female

DRUGS (1)
  1. MIRENA [Suspect]
     Dosage: 20 MCG/24HR, CONT
     Route: 015
     Dates: start: 200802

REACTIONS (7)
  - Amenorrhoea [None]
  - Device misuse [None]
  - Therapeutic response unexpected [None]
  - Loss of libido [None]
  - Libido increased [None]
  - Vaginal discharge [None]
  - Weight increased [None]
